FAERS Safety Report 14384252 (Version 3)
Quarter: 2018Q4

REPORT INFORMATION
  Report Type: Report from Study
  Country: None (occurrence: ES)
  Receive Date: 20180115
  Receipt Date: 20181126
  Transmission Date: 20190204
  Serious: Yes (Hospitalization, Other)
  Sender: FDA-Public Use
  Company Number: ES-ABBVIE-17K-144-2194148-00

PATIENT
  Age: 69 Year
  Sex: Male
  Weight: 100 kg

DRUGS (1)
  1. DUODOPA [Suspect]
     Active Substance: CARBIDOPA\LEVODOPA
     Indication: PARKINSON^S DISEASE
     Route: 050
     Dates: start: 20171109

REACTIONS (10)
  - Contusion [Recovering/Resolving]
  - Mobility decreased [Recovering/Resolving]
  - Musculoskeletal disorder [Unknown]
  - Rib fracture [Recovering/Resolving]
  - Fall [Recovered/Resolved]
  - Pneumonia [Unknown]
  - Femur fracture [Unknown]
  - Drug ineffective [Unknown]
  - Fall [Recovering/Resolving]
  - Mononeuropathy [Not Recovered/Not Resolved]

NARRATIVE: CASE EVENT DATE: 201711
